FAERS Safety Report 13996830 (Version 1)
Quarter: 2017Q3

REPORT INFORMATION
  Report Type: Report from Study
  Country: None (occurrence: ES)
  Receive Date: 20170921
  Receipt Date: 20170921
  Transmission Date: 20171128
  Serious: Yes (Death)
  Sender: FDA-Public Use
  Company Number: ES-ABBVIE-17K-144-2108090-00

PATIENT
  Age: 88 Year
  Sex: Female

DRUGS (1)
  1. DUODOPA [Suspect]
     Active Substance: CARBIDOPA\LEVODOPA
     Indication: PARKINSON^S DISEASE
     Route: 050
     Dates: start: 20080101, end: 20170917

REACTIONS (2)
  - Skin exfoliation [Unknown]
  - Death [Fatal]

NARRATIVE: CASE EVENT DATE: 2017
